FAERS Safety Report 13688964 (Version 2)
Quarter: 2017Q2

REPORT INFORMATION
  Report Type: Spontaneous
  Country: FR (occurrence: FR)
  Receive Date: 20170626
  Receipt Date: 20170630
  Transmission Date: 20170830
  Serious: Yes (Other)
  Sender: FDA-Public Use
  Company Number: FR-BAYER-2017-118440

PATIENT
  Age: 38 Year
  Sex: Female

DRUGS (1)
  1. MIRENA [Suspect]
     Active Substance: LEVONORGESTREL
     Indication: CONTRACEPTION
     Dosage: 20 MCG/24HR, CONT
     Route: 015
     Dates: start: 20150121, end: 20170520

REACTIONS (13)
  - Myalgia [Recovered/Resolved]
  - Depression [Recovering/Resolving]
  - Anxiety [Recovering/Resolving]
  - Anxiety [Recovered/Resolved]
  - Breast cyst [Unknown]
  - Bone pain [Recovered/Resolved]
  - Dyspnoea [Recovered/Resolved]
  - Breast pain [Recovered/Resolved]
  - Tendonitis [Recovered/Resolved]
  - Weight increased [Unknown]
  - Dizziness [Recovered/Resolved]
  - Hyperventilation [Recovered/Resolved]
  - Abdominal distension [Recovered/Resolved]

NARRATIVE: CASE EVENT DATE: 201509
